FAERS Safety Report 8057521-2 (Version None)
Quarter: 2012Q1

REPORT INFORMATION
  Report Type: 
  Country: None (occurrence: None)
  Receive Date: 20120119
  Receipt Date: 20120109
  Transmission Date: 20120608
  Serious: Yes (Hospitalization)
  Sender: FDA-Public Use
  Company Number: US-GILEAD-2012-0048990

PATIENT
  Sex: Female

DRUGS (6)
  1. AMBIEN [Concomitant]
     Indication: INSOMNIA
     Dosage: UNK
     Dates: start: 20110601
  2. TOPAMAX [Concomitant]
     Indication: HEADACHE
     Dosage: UNK
     Dates: start: 20110601
  3. ZANTAC [Concomitant]
     Indication: GASTROOESOPHAGEAL REFLUX DISEASE
     Dosage: UNK
     Dates: start: 20110127
  4. VITAMIN B12                        /00056201/ [Concomitant]
     Indication: ANAEMIA
     Dosage: UNK
     Dates: start: 20100903
  5. EFAVIRENZ/EMTRICITABINE/TENOFOVIR DISOPROXIL FUMARATE [Suspect]
     Indication: HIV INFECTION
     Dosage: 1 DF, QD
     Route: 048
     Dates: start: 20100811
  6. FOLIC ACID [Concomitant]
     Indication: ANAEMIA
     Dosage: UNK
     Dates: start: 20100501

REACTIONS (1)
  - CHEST PAIN [None]
